FAERS Safety Report 15306667 (Version 2)
Quarter: 2019Q2

REPORT INFORMATION
  Report Type: Spontaneous
  Country: US (occurrence: US)
  Receive Date: 20180822
  Receipt Date: 20190425
  Transmission Date: 20190711
  Serious: Yes (Hospitalization, Other)
  Sender: FDA-Public Use
  Company Number: US-GLAXOSMITHKLINE-US2018GSK150980

PATIENT
  Age: 55 Year
  Sex: Male
  Weight: 136 kg

DRUGS (2)
  1. OMEPRAZOLE. [Suspect]
     Active Substance: OMEPRAZOLE
     Indication: GASTROOESOPHAGEAL REFLUX DISEASE
     Dosage: 20 NG, UNK
     Route: 065
  2. PREVACID [Suspect]
     Active Substance: LANSOPRAZOLE
     Indication: GASTROOESOPHAGEAL REFLUX DISEASE
     Dosage: UNK UNK, QD
     Route: 065

REACTIONS (10)
  - Renal failure [Unknown]
  - Hypertensive nephropathy [Unknown]
  - Chronic kidney disease [Unknown]
  - End stage renal disease [Unknown]
  - Urinary retention [Unknown]
  - Renal cell carcinoma [Unknown]
  - Renal impairment [Unknown]
  - Kidney infection [Unknown]
  - Renal cancer [Unknown]
  - Renal mass [Unknown]

NARRATIVE: CASE EVENT DATE: 10120207
